FAERS Safety Report 7065460-9 (Version None)
Quarter: 2010Q4

REPORT INFORMATION
  Report Type: 
  Country: None (occurrence: None)
  Receive Date: 20101027
  Receipt Date: 20101025
  Transmission Date: 20110411
  Serious: Yes (Death, Other)
  Sender: FDA-Public Use
  Company Number: US-PFIZER INC-2010135668

PATIENT
  Sex: Male
  Weight: 170.7 kg

DRUGS (5)
  1. BEXTRA [Suspect]
     Indication: JOINT INJURY
     Dosage: 10 MG, 1X/DAY
     Route: 048
     Dates: start: 20030801
  2. ACETAMINOPHEN [Concomitant]
     Dosage: UNK
  3. TOPROL-XL [Concomitant]
     Dosage: UNK
     Route: 048
  4. NORVASC [Concomitant]
     Dosage: UNK
     Route: 048
  5. AVALIDE [Concomitant]
     Dosage: UNK
     Route: 048

REACTIONS (2)
  - DIABETES MELLITUS [None]
  - MYOCARDIAL INFARCTION [None]
